FAERS Safety Report 13111310 (Version 1)
Quarter: 2017Q1

REPORT INFORMATION
  Report Type: Spontaneous
  Country: US (occurrence: US)
  Receive Date: 20170112
  Receipt Date: 20170112
  Transmission Date: 20170428
  Serious: Yes (Hospitalization)
  Sender: FDA-Public Use
  Company Number: US-PFIZER INC-2016537335

PATIENT
  Age: 59 Year
  Sex: Female
  Weight: 73 kg

DRUGS (2)
  1. CHILDRENS ROBITUSSIN COUGH AND COLD LONG-ACTING [Suspect]
     Active Substance: CHLORPHENIRAMINE MALEATE\DEXTROMETHORPHAN HYDROBROMIDE
     Indication: NASOPHARYNGITIS
     Dosage: UNK UNK, ONCE
     Dates: start: 20161108, end: 2016
  2. ROBITUSSIN COUGH AND COLD D [Concomitant]
     Active Substance: DEXTROMETHORPHAN HYDROBROMIDE\GUAIFENESIN\PSEUDOEPHEDRINE HYDROCHLORIDE
     Dosage: UNK
     Dates: start: 20161114

REACTIONS (2)
  - Intentional underdose [Recovered/Resolved]
  - Paranasal sinus hypersecretion [Not Recovered/Not Resolved]

NARRATIVE: CASE EVENT DATE: 201611
